FAERS Safety Report 23831520 (Version 1)
Quarter: 2024Q2

REPORT INFORMATION
  Report Type: Spontaneous
  Country: US (occurrence: US)
  Receive Date: 20240508
  Receipt Date: 20240508
  Transmission Date: 20240715
  Serious: No
  Sender: FDA-Public Use
  Company Number: US-GALDERMA-US2024006526

PATIENT

DRUGS (6)
  1. PROACTIV MD ADAPALENE ACNE TREATMENT [Suspect]
     Active Substance: ADAPALENE
     Indication: Product used for unknown indication
     Dosage: 1 DOSAGE FORM, FOUR OR FIVE TIMES A WEEK
     Route: 061
     Dates: start: 202403
  2. Proactiv MD Ultra Gentle Cleanser [Concomitant]
     Indication: Product used for unknown indication
     Dosage: 1 DOSAGE FORM, FOUR OR FIVE TIMES A WEEK
     Route: 061
     Dates: start: 202403
  3. COSMETICS [Concomitant]
     Active Substance: COSMETICS
     Indication: Product used for unknown indication
     Dosage: 1 DOSAGE FORM, FOUR OR FIVE TIMES A WEEK
     Route: 061
     Dates: start: 202403
  4. COSMETICS [Concomitant]
     Active Substance: COSMETICS
     Indication: Product used for unknown indication
     Dosage: 1 DOSAGE FORM, FOUR OR FIVE TIMES A WEEK
     Route: 061
     Dates: start: 202403
  5. COSMETICS [Concomitant]
     Active Substance: COSMETICS
     Indication: Product used for unknown indication
     Dosage: 1 DOSAGE FORM, FOUR OR FIVE TIMES A WEEK
     Route: 061
     Dates: start: 202403
  6. Proactiv Zits Happen Patches [Concomitant]
     Indication: Product used for unknown indication
     Dosage: 1 DOSAGE FORM, FOUR OR FIVE TIMES A WEEK
     Route: 061
     Dates: start: 202403

REACTIONS (5)
  - Skin irritation [Unknown]
  - Skin burning sensation [Unknown]
  - Dry skin [Unknown]
  - Inappropriate schedule of product administration [Recovered/Resolved]
  - Underdose [Recovered/Resolved]

NARRATIVE: CASE EVENT DATE: 20240101
